FAERS Safety Report 8138448-4 (Version None)
Quarter: 2012Q1

REPORT INFORMATION
  Report Type: 
  Country: None (occurrence: None)
  Receive Date: 20120215
  Receipt Date: 20120131
  Transmission Date: 20120608
  Serious: Yes (Hospitalization)
  Sender: FDA-Public Use
  Company Number: JP-ROCHE-1033828

PATIENT
  Sex: Female
  Weight: 51 kg

DRUGS (15)
  1. ACTEMRA [Suspect]
     Route: 041
     Dates: start: 20110913, end: 20111115
  2. METHOTREXATE [Concomitant]
     Indication: RHEUMATOID ARTHRITIS
     Route: 048
     Dates: end: 20110713
  3. MOHRUS TAPE [Concomitant]
     Indication: RHEUMATOID ARTHRITIS
     Route: 061
  4. TALION (JAPAN) [Concomitant]
     Dosage: WHEN ADMINISTERING ACTEMRA
     Route: 048
     Dates: start: 20110525, end: 20111115
  5. ACETAMINOPHEN [Concomitant]
     Dosage: WHEN ADMINISTERING ACTEMRA
     Route: 048
     Dates: start: 20110525, end: 20111115
  6. BAZEDOXIFENE ACETATE [Concomitant]
     Route: 048
     Dates: start: 20110713
  7. PREDNISOLONE [Concomitant]
     Indication: RHEUMATOID ARTHRITIS
     Route: 048
  8. GASLON N [Concomitant]
     Route: 048
  9. ONEALFA [Concomitant]
     Route: 048
     Dates: end: 20110713
  10. INFLUENZA HA VACCINE [Concomitant]
     Indication: ANTIVIRAL PROPHYLAXIS
     Dosage: DOSAGE IS UNCERTAIN.
     Route: 058
     Dates: start: 20111101, end: 20111101
  11. KETOPROFEN [Concomitant]
     Indication: RHEUMATOID ARTHRITIS
     Route: 061
  12. ACTEMRA [Suspect]
     Indication: RHEUMATOID ARTHRITIS
     Route: 041
     Dates: start: 20110426, end: 20110621
  13. BAZEDOXIFENE ACETATE [Concomitant]
     Indication: OSTEOPOROSIS
     Route: 048
     Dates: start: 20110713
  14. MUCOSOLVAN [Concomitant]
     Route: 048
  15. ALENDRONATE SODIUM [Concomitant]
     Indication: OSTEOPOROSIS
     Route: 048
     Dates: end: 20110712

REACTIONS (10)
  - BACK PAIN [None]
  - PAIN [None]
  - JOINT SWELLING [None]
  - DIARRHOEA [None]
  - BLOOD IMMUNOGLOBULIN G DECREASED [None]
  - INFECTED DERMAL CYST [None]
  - ARTHRITIS [None]
  - BRONCHIECTASIS [None]
  - RENAL IMPAIRMENT [None]
  - NEUROGENIC BLADDER [None]
